FAERS Safety Report 24794969 (Version 1)
Quarter: 2024Q4

REPORT INFORMATION
  Report Type: Spontaneous
  Country: US (occurrence: None)
  Receive Date: 20241231
  Receipt Date: 20241231
  Transmission Date: 20250115
  Serious: Yes (Other)
  Sender: Public
  Company Number: None

PATIENT
  Age: 54 Year
  Sex: Female
  Weight: 145 kg

DRUGS (4)
  1. REZDIFFRA [Suspect]
     Active Substance: RESMETIROM
     Indication: Steatohepatitis
     Dosage: 100 MG DAILY ORAL
     Route: 048
     Dates: start: 20241030
  2. REZDIFFRA [Suspect]
     Active Substance: RESMETIROM
     Indication: Metabolic dysfunction-associated liver disease
  3. BOTOX [Suspect]
     Active Substance: ONABOTULINUMTOXINA
  4. RIMEGEPANT [Suspect]
     Active Substance: RIMEGEPANT

REACTIONS (2)
  - Headache [None]
  - Migraine [None]

NARRATIVE: CASE EVENT DATE: 20241230
